FAERS Safety Report 12562309 (Version 3)
Quarter: 2016Q3

REPORT INFORMATION
  Report Type: Spontaneous
  Country: DE (occurrence: DE)
  Receive Date: 20160715
  Receipt Date: 20160818
  Transmission Date: 20161109
  Serious: Yes (Life-Threatening, Hospitalization, Other)
  Sender: FDA-Public Use
  Company Number: DE-BEH-2016071174

PATIENT
  Age: 57 Year
  Sex: Male

DRUGS (14)
  1. CARBOPLATIN. [Concomitant]
     Active Substance: CARBOPLATIN
     Indication: CHEMOTHERAPY
     Dosage: AUC5
     Route: 065
     Dates: start: 20160627
  2. ETOPOSIDE. [Concomitant]
     Active Substance: ETOPOSIDE
     Indication: CHEMOTHERAPY
     Dosage: 100 MG/M2, UNK
     Route: 065
     Dates: start: 20160627
  3. KLACID                             /00984601/ [Concomitant]
     Active Substance: CLARITHROMYCIN
     Dosage: UNK
     Route: 065
     Dates: start: 20160630, end: 20160702
  4. MORPHINE [Concomitant]
     Active Substance: MORPHINE
  5. PIPERACILLIN/TAZOBACTAM [Concomitant]
     Active Substance: PIPERACILLIN SODIUM\TAZOBACTAM SODIUM
     Dosage: UNK
     Route: 065
     Dates: start: 20160630, end: 20160702
  6. PRIVIGEN [Suspect]
     Active Substance: HUMAN IMMUNOGLOBULIN G
     Indication: SECONDARY IMMUNODEFICIENCY
     Dosage: 10 G, UNK
     Route: 042
     Dates: start: 201607
  7. ENTECAVIR. [Concomitant]
     Active Substance: ENTECAVIR
     Indication: CHRONIC HEPATITIS B
     Dosage: 0.5 MG, UNK
     Route: 065
  8. IFOSFAMIDE. [Concomitant]
     Active Substance: IFOSFAMIDE
     Indication: CHEMOTHERAPY
     Dosage: 5000 MG/M2, UNK
     Route: 065
     Dates: start: 20160627
  9. RITUXIMAB [Concomitant]
     Active Substance: RITUXIMAB
     Indication: CHEMOTHERAPY
     Dosage: 375 MG/M2, UNK
     Route: 065
     Dates: start: 20160627
  10. G-CSF [Concomitant]
     Active Substance: GRANULOCYTE COLONY-STIMULATING FACTOR NOS
     Dosage: TWO-TIME
     Route: 065
  11. MESNA. [Concomitant]
     Active Substance: MESNA
     Dosage: UNK
     Route: 065
     Dates: start: 20160627
  12. MERONEM [Concomitant]
     Active Substance: MEROPENEM
     Dosage: UNK
     Route: 065
     Dates: start: 20160703
  13. MIDAZOLAM [Concomitant]
     Active Substance: MIDAZOLAM\MIDAZOLAM HYDROCHLORIDE
  14. VANCOMYCIN [Concomitant]
     Active Substance: VANCOMYCIN
     Dosage: 1 G, PRN
     Route: 065
     Dates: start: 20160703

REACTIONS (6)
  - Bronchospasm [Recovered/Resolved]
  - Muscle spasticity [Recovered/Resolved]
  - Anaphylactic shock [Recovered/Resolved]
  - Allergic transfusion reaction [Recovered/Resolved]
  - Asphyxia [Recovered/Resolved]
  - Shock [Recovered/Resolved]
